FAERS Safety Report 17422780 (Version 3)
Quarter: 2022Q4

REPORT INFORMATION
  Report Type: Other
  Country: CA (occurrence: None)
  Receive Date: 20200215
  Receipt Date: 20221102
  Transmission Date: 20230113
  Serious: Yes (Other)
  Sender: FDA-Public Use
  Company Number: CA-ROCHE-2548610

PATIENT
  Age: 33 Year
  Sex: Female

DRUGS (4)
  1. OCREVUS [Suspect]
     Active Substance: OCRELIZUMAB
     Indication: Relapsing-remitting multiple sclerosis
     Dosage: 300 MG AR DAY 0, 14 THEN 600 MG EVERY 6 MONTHS
     Route: 042
     Dates: start: 20190716
  2. CELEXA [Concomitant]
     Active Substance: CITALOPRAM HYDROBROMIDE
  3. CETIRIZINE [Concomitant]
     Active Substance: CETIRIZINE HYDROCHLORIDE
  4. CEPHALEXIN [Concomitant]
     Active Substance: CEPHALEXIN
     Dosage: 500 MG DAYS 4 1
     Dates: start: 20200209

REACTIONS (1)
  - External ear cellulitis [Recovered/Resolved]

NARRATIVE: CASE EVENT DATE: 20200207
